FAERS Safety Report 7793837-2 (Version None)
Quarter: 2011Q4

REPORT INFORMATION
  Report Type: 
  Country: None (occurrence: None)
  Receive Date: 20111004
  Receipt Date: 20110919
  Transmission Date: 20120403
  Serious: Yes (Life-Threatening, Hospitalization)
  Sender: FDA-Public Use
  Company Number: US-RANBAXY-2011US-48373

PATIENT
  Sex: Male

DRUGS (3)
  1. BISOPROLOL [Suspect]
     Indication: PRODUCT USED FOR UNKNOWN INDICATION
     Dosage: UNK
     Route: 048
  2. VERAPAMIL [Suspect]
     Indication: ACUTE CORONARY SYNDROME
  3. VERAPAMIL [Suspect]
     Indication: CARDIOMYOPATHY
     Dosage: 14.4 G DAILY
     Route: 048
     Dates: start: 20090201

REACTIONS (11)
  - MULTI-ORGAN FAILURE [None]
  - ACID BASE BALANCE ABNORMAL [None]
  - CARDIOGENIC SHOCK [None]
  - TOXICITY TO VARIOUS AGENTS [None]
  - HEPATIC FUNCTION ABNORMAL [None]
  - ATRIOVENTRICULAR BLOCK [None]
  - BRADYCARDIA [None]
  - HYPOTENSION [None]
  - INTENTIONAL OVERDOSE [None]
  - RENAL IMPAIRMENT [None]
  - ALTERED STATE OF CONSCIOUSNESS [None]
